FAERS Safety Report 11716112 (Version 2)
Quarter: 2015Q4

REPORT INFORMATION
  Report Type: Spontaneous
  Country: US (occurrence: US)
  Receive Date: 20151104
  Receipt Date: 20151110
  Transmission Date: 20160304
  Serious: No
  Sender: FDA-Public Use
  Company Number: US-ELI_LILLY_AND_COMPANY-US201104005981

PATIENT
  Sex: Female

DRUGS (5)
  1. ALERTEC [Concomitant]
     Active Substance: MODAFINIL
  2. FORTEO [Suspect]
     Active Substance: TERIPARATIDE
     Dosage: 20 UG, QD
     Route: 065
  3. FORTEO [Suspect]
     Active Substance: TERIPARATIDE
     Indication: OSTEOPOROSIS
     Dosage: 20 UG, QD
     Route: 065
  4. NEXIUM [Concomitant]
     Active Substance: ESOMEPRAZOLE MAGNESIUM
  5. LORATADINA [Concomitant]
     Active Substance: LORATADINE

REACTIONS (5)
  - Cataract [Unknown]
  - Malaise [Unknown]
  - Asthenia [Unknown]
  - Dizziness [Unknown]
  - Abdominal discomfort [Unknown]
